FAERS Safety Report 25324430 (Version 2)
Quarter: 2025Q2

REPORT INFORMATION
  Report Type: Spontaneous
  Country: DE (occurrence: DE)
  Receive Date: 20250516
  Receipt Date: 20250521
  Transmission Date: 20250716
  Serious: Yes (Congenital Anomaly)
  Sender: ABBVIE
  Company Number: DE-EMB-M201900721-1

PATIENT
  Sex: Female
  Weight: 3 kg

DRUGS (2)
  1. CITALOPRAM [Suspect]
     Active Substance: CITALOPRAM
     Indication: Maternal exposure timing unspecified
     Route: 064
  2. QUETIAPINE [Suspect]
     Active Substance: QUETIAPINE
     Indication: Maternal exposure timing unspecified
     Route: 064

REACTIONS (2)
  - Developmental hip dysplasia [Recovering/Resolving]
  - Foetal exposure during pregnancy [Unknown]
